FAERS Safety Report 26022475 (Version 1)
Quarter: 2025Q4

REPORT INFORMATION
  Report Type: Spontaneous
  Country: EU (occurrence: EU)
  Receive Date: 20251110
  Receipt Date: 20251110
  Transmission Date: 20260117
  Serious: Yes (Death, Life-Threatening, Other)
  Sender: AMGEN
  Company Number: EU-AMGEN-DEUSP2025220783

PATIENT

DRUGS (4)
  1. FILGRASTIM [Suspect]
     Active Substance: FILGRASTIM
     Indication: Diffuse large B-cell lymphoma
     Route: 065
  2. FILGRASTIM [Suspect]
     Active Substance: FILGRASTIM
     Indication: Follicular lymphoma
  3. PEGFILGRASTIM [Suspect]
     Active Substance: PEGFILGRASTIM
     Indication: Diffuse large B-cell lymphoma
     Route: 065
  4. PEGFILGRASTIM [Suspect]
     Active Substance: PEGFILGRASTIM
     Indication: Follicular lymphoma

REACTIONS (7)
  - Death [Fatal]
  - Acute kidney injury [Unknown]
  - Agranulocytosis [Unknown]
  - Aplastic anaemia [Unknown]
  - Thrombocytopenia [Unknown]
  - Anxiety [Unknown]
  - Stress [Unknown]
